FAERS Safety Report 7830987-6 (Version None)
Quarter: 2011Q4

REPORT INFORMATION
  Report Type: 
  Country: None (occurrence: None)
  Receive Date: 20111021
  Receipt Date: 20110829
  Transmission Date: 20120403
  Serious: Yes (Death)
  Sender: FDA-Public Use
  Company Number: CR-PFIZER INC-2011203261

PATIENT
  Age: 88 Year
  Sex: Male

DRUGS (4)
  1. PANTOPRAZOLE [Suspect]
     Dosage: 0.5 DF, 2X/DAY
     Route: 048
  2. TRAMADOL HYDROCHLORIDE [Concomitant]
  3. PANTOPRAZOLE [Suspect]
     Indication: ABDOMINAL PAIN
     Dosage: 0.5 DF, 1X/DAY
     Route: 048
     Dates: start: 20110530
  4. PANTOPRAZOLE [Suspect]
     Dosage: 0.5 DF, 3X/DAY
     Route: 048

REACTIONS (1)
  - MYOCARDIAL INFARCTION [None]
